FAERS Safety Report 18286437 (Version 1)
Quarter: 2020Q3

REPORT INFORMATION
  Report Type: Spontaneous
  Country: US (occurrence: US)
  Receive Date: 20200920
  Receipt Date: 20200920
  Transmission Date: 20201103
  Serious: Yes (Hospitalization)
  Sender: FDA-Public Use
  Company Number: US-UNICHEM PHARMACEUTICALS (USA) INC-UCM202009-001029

PATIENT
  Age: 18 Year
  Sex: Male

DRUGS (1)
  1. DIVALPROEX SODIUM. [Suspect]
     Active Substance: DIVALPROEX SODIUM
     Indication: SEIZURE

REACTIONS (4)
  - Pancreatic necrosis [Unknown]
  - Pancreatitis acute [Unknown]
  - Mesenteric vein thrombosis [Unknown]
  - Splenic vein thrombosis [Unknown]
